FAERS Safety Report 10037865 (Version 1)
Quarter: 2014Q1

REPORT INFORMATION
  Report Type: Spontaneous
  Country: US (occurrence: US)
  Receive Date: 20140326
  Receipt Date: 20140326
  Transmission Date: 20141002
  Serious: No
  Sender: FDA-Public Use
  Company Number: US-009507513-1403USA011807

PATIENT
  Age: 61 Year
  Sex: Male

DRUGS (1)
  1. PEGINTRON [Suspect]
     Dosage: 1 INJECTION PER WEEK
     Dates: start: 20140316

REACTIONS (2)
  - Product quality issue [Unknown]
  - No adverse event [Unknown]
